FAERS Safety Report 14904299 (Version 1)
Quarter: 2018Q2

REPORT INFORMATION
  Report Type: Spontaneous
  Country: DE (occurrence: DE)
  Receive Date: 20180516
  Receipt Date: 20180516
  Transmission Date: 20180711
  Serious: Yes (Other)
  Sender: FDA-Public Use
  Company Number: DE-TEVA-2018-DE-892140

PATIENT
  Age: 75 Year
  Sex: Female
  Weight: 72.7 kg

DRUGS (21)
  1. PACLITAXEL. [Suspect]
     Active Substance: PACLITAXEL
     Dosage: DAILY DOSE 317MG MILLIGRAM(S) EVERY 3 WEEKS
     Route: 042
     Dates: start: 20160323
  2. PACLITAXEL. [Suspect]
     Active Substance: PACLITAXEL
     Dosage: DAILY DOSE :317 MG MILLIGRAM(S)EVERY 3 WEEKS
     Route: 042
     Dates: start: 20160210
  3. CALCIGEN [Concomitant]
     Indication: OSTEOPOROSIS
     Dosage: 1200 MILLIGRAM DAILY;
     Route: 048
     Dates: start: 20160203
  4. DAFIRO [Concomitant]
     Active Substance: AMLODIPINE\VALSARTAN
     Dosage: 7.5 MILLIGRAM DAILY;
     Route: 048
     Dates: start: 20160323
  5. NOVAMINSULFON [Concomitant]
     Active Substance: METAMIZOLE
     Indication: PAIN
     Dosage: 1500 MILLIGRAM DAILY;
     Route: 048
     Dates: start: 2015
  6. CARBOPLATIN. [Suspect]
     Active Substance: CARBOPLATIN
     Indication: OVARIAN CANCER
     Dosage: DAILY DOSE: 425 MG MILLIGRAM(S) EVERY 3 WEEKS
     Route: 042
     Dates: start: 20160302
  7. TORASEMIDE [Concomitant]
     Active Substance: TORSEMIDE
     Indication: HYPERTENSION
     Route: 048
     Dates: start: 20160121
  8. CARBOPLATIN. [Suspect]
     Active Substance: CARBOPLATIN
     Dosage: DAILY DOSE:425 MG, MILLIGRAM(S) EVERY 3 WEEKS
     Route: 042
     Dates: start: 20160210
  9. CARBOPLATIN. [Suspect]
     Active Substance: CARBOPLATIN
     Dosage: SUBSEQUENT DOSE ON 10-FEB-2016
     Route: 042
     Dates: start: 20160120
  10. OMEPRAZOL [Concomitant]
     Active Substance: OMEPRAZOLE
     Indication: DIVERTICULUM
     Route: 048
     Dates: start: 201510
  11. AVASTIN [Suspect]
     Active Substance: BEVACIZUMAB
     Indication: OVARIAN CANCER
     Dosage: THERAPY INTERRUPTED DUE TO WORSENING OF HYPERTENSION
     Route: 042
     Dates: start: 20160303
  12. CARBOPLATIN. [Suspect]
     Active Substance: CARBOPLATIN
     Dosage: DAILY DOSE :425MG,MILLIGRAM(S) EVERY 3 WEEKS
     Route: 042
     Dates: start: 20160323
  13. CARBOPLATIN. [Suspect]
     Active Substance: CARBOPLATIN
     Dosage: DAILY DOSE: 425 MG MILLIGRAM(S) EVERY 3 WEEKS
     Route: 042
     Dates: start: 20160413
  14. SIMVASTATIN. [Concomitant]
     Active Substance: SIMVASTATIN
     Indication: HYPERCHOLESTEROLAEMIA
     Route: 048
     Dates: start: 2015
  15. DAFIRO [Concomitant]
     Active Substance: AMLODIPINE\VALSARTAN
     Indication: HYPERTENSION
     Route: 048
     Dates: start: 2015, end: 20160322
  16. PACLITAXEL. [Suspect]
     Active Substance: PACLITAXEL
     Indication: OVARIAN CANCER
     Dosage: SUBSEQUENT DOSE ON 10/FEB/2016
     Route: 042
     Dates: start: 20160120
  17. L-THYROXIN [Concomitant]
     Active Substance: LEVOTHYROXINE SODIUM
     Route: 048
     Dates: start: 2013
  18. PACLITAXEL. [Suspect]
     Active Substance: PACLITAXEL
     Dosage: DAILY DOSE 317 MG, MILLIGRAM(S) EVERY 3 WEEKS
     Route: 042
     Dates: start: 20160302
  19. AVASTIN [Suspect]
     Active Substance: BEVACIZUMAB
     Dosage: MOST RECENT DOSE PRIOR TO ANEMIA: 03/MAR/2016
     Route: 042
     Dates: start: 20160211
  20. AVASTIN [Suspect]
     Active Substance: BEVACIZUMAB
     Dosage: THERAPY RESTARTED
     Route: 042
  21. DEKRISTOL [Concomitant]
     Active Substance: CHOLECALCIFEROL
     Indication: OSTEOPOROSIS
     Dosage: DAILY DOSE: 40000 IU INTERNATIONAL UNIT(S) EVERY WEEKS
     Route: 048
     Dates: start: 20160203

REACTIONS (8)
  - Anaemia [Recovered/Resolved]
  - Abdominal pain [Recovered/Resolved]
  - Constipation [Recovered/Resolved]
  - Protein urine present [Not Recovered/Not Resolved]
  - Hypertension [Recovered/Resolved]
  - Sensory disturbance [Recovered/Resolved]
  - Skin disorder [Recovered/Resolved]
  - Dysgeusia [Recovered/Resolved]

NARRATIVE: CASE EVENT DATE: 20160210
